FAERS Safety Report 8493875-0 (Version None)
Quarter: 2012Q3

REPORT INFORMATION
  Report Type: 
  Country: None (occurrence: None)
  Receive Date: 20120706
  Receipt Date: 20120626
  Transmission Date: 20120928
  Serious: Yes (Other)
  Sender: FDA-Public Use
  Company Number: PHHY2012TR054755

PATIENT
  Age: 71 Year
  Sex: Male

DRUGS (4)
  1. DICLOFENAC SODIUM [Suspect]
     Route: 061
  2. RANIBIZUMAB [Suspect]
     Dosage: 0.05 ML, UNK
  3. MOXIFLOXACIN [Concomitant]
     Route: 061
  4. ANESTHETICS [Concomitant]
     Route: 061

REACTIONS (2)
  - RETINAL OEDEMA [None]
  - OPTIC DISC DISORDER [None]
